FAERS Safety Report 19865650 (Version 1)
Quarter: 2021Q3

REPORT INFORMATION
  Report Type: Spontaneous
  Country: US (occurrence: US)
  Receive Date: 20210921
  Receipt Date: 20210921
  Transmission Date: 20211014
  Serious: Yes (Other)
  Sender: FDA-Public Use
  Company Number: US-IGSA-BIG0016040

PATIENT
  Sex: Male

DRUGS (1)
  1. KOATE ?DVI [Suspect]
     Active Substance: ANTIHEMOPHILIC FACTOR HUMAN
     Indication: PRODUCT USED FOR UNKNOWN INDICATION
     Dosage: UNK, UNKNOWN
     Route: 065

REACTIONS (10)
  - HIV infection [Unknown]
  - Cataract [Unknown]
  - Tooth loss [Unknown]
  - Testicular disorder [Unknown]
  - Suspected transmission of an infectious agent via product [Unknown]
  - Infection susceptibility increased [Unknown]
  - Impaired quality of life [Unknown]
  - Fatigue [Unknown]
  - Eye infection [Unknown]
  - Hepatitis B [Unknown]
